FAERS Safety Report 19799057 (Version 1)
Quarter: 2021Q3

REPORT INFORMATION
  Report Type: Spontaneous
  Country: FR (occurrence: FR)
  Receive Date: 20210907
  Receipt Date: 20210907
  Transmission Date: 20211014
  Serious: Yes (Hospitalization)
  Sender: FDA-Public Use
  Company Number: FR-ORGANON-O2109FRA000291

PATIENT
  Age: 91 Year
  Sex: Male
  Weight: 68.4 kg

DRUGS (3)
  1. SINEMET [Suspect]
     Active Substance: CARBIDOPA\LEVODOPA
     Indication: EXTRAPYRAMIDAL DISORDER
     Dosage: FORMULATION REPORTED AS SCORED TABLET
     Route: 048
     Dates: start: 202102, end: 20210812
  2. COMIRNATY [Suspect]
     Active Substance: TOZINAMERAN
     Indication: COVID-19 IMMUNISATION
     Dosage: D1 + D2
     Route: 030
     Dates: start: 20210226, end: 20210402
  3. MODOPAR [Suspect]
     Active Substance: BENSERAZIDE HYDROCHLORIDE\LEVODOPA
     Indication: EXTRAPYRAMIDAL DISORDER
     Dosage: 250 MILLIGRAM (200/50 MILLIGRAM), FORMULATION REPORTED AS CLOVER?SHAPED SCORED TABLET
     Route: 048
     Dates: start: 202102, end: 20210812

REACTIONS (1)
  - Colitis microscopic [Recovering/Resolving]

NARRATIVE: CASE EVENT DATE: 202103
